FAERS Safety Report 6723839-6 (Version None)
Quarter: 2010Q2

REPORT INFORMATION
  Report Type: 
  Country: None (occurrence: None)
  Receive Date: 20100513
  Receipt Date: 20100429
  Transmission Date: 20101027
  Serious: Yes (Hospitalization)
  Sender: FDA-Public Use
  Company Number: CA-MEDIMMUNE-MEDI-0011027

PATIENT
  Sex: Female

DRUGS (5)
  1. SYNAGIS [Suspect]
     Route: 030
     Dates: start: 20100204
  2. ALDACTAZIDE-A [Concomitant]
     Route: 048
  3. LANSOPRAZOLE [Concomitant]
  4. FERROUS SULFATE TAB [Concomitant]
  5. POLY-VI-SOL [Concomitant]

REACTIONS (5)
  - GASTROOESOPHAGEAL REFLUX DISEASE [None]
  - LARYNGEAL OEDEMA [None]
  - LARYNGEAL STENOSIS [None]
  - OXYGEN SATURATION DECREASED [None]
  - VOCAL CORD PARALYSIS [None]
